FAERS Safety Report 4615896-8 (Version None)
Quarter: 2005Q1

REPORT INFORMATION
  Report Type: 
  Country: None (occurrence: None)
  Receive Date: 20050318
  Receipt Date: 20050106
  Transmission Date: 20050727
  Serious: Yes (Death, Other)
  Sender: FDA-Public Use
  Company Number: 20044211320GB

PATIENT
  Age: 79 Year
  Sex: Female
  Weight: 76.0229 kg

DRUGS (8)
  1. BEXTRA [Suspect]
     Indication: BACK PAIN
     Dosage: 20 MG (20 MG, 1 IN 1 D), ORAL
     Route: 048
     Dates: start: 20040212, end: 20040330
  2. AMLODIPINE [Concomitant]
  3. BENDROFLUMETHIAZIDE (BENDROFLUMETHIAZIDE) [Concomitant]
  4. DICLOFENAC SODIUM [Concomitant]
  5. ETORICOXIB (ETORICOXIB) [Concomitant]
  6. NIFEDIPINE [Concomitant]
  7. ASPIRIN [Concomitant]
  8. ACETAMINOPHEN [Concomitant]

REACTIONS (14)
  - BLOOD ALCOHOL [None]
  - CARDIAC ARREST [None]
  - CIRCULATORY COLLAPSE [None]
  - CONTUSION [None]
  - DIARRHOEA [None]
  - DYSPNOEA [None]
  - FACE INJURY [None]
  - GASTROINTESTINAL STROMAL TUMOUR [None]
  - LACERATION [None]
  - LOCAL SWELLING [None]
  - PHOTOSENSITIVITY REACTION [None]
  - SUDDEN DEATH [None]
  - SWELLING FACE [None]
  - VOMITING [None]
